FAERS Safety Report 24885213 (Version 1)
Quarter: 2025Q1

REPORT INFORMATION
  Report Type: Spontaneous
  Country: NZ (occurrence: NZ)
  Receive Date: 20250124
  Receipt Date: 20250124
  Transmission Date: 20250408
  Serious: Yes (Other)
  Sender: SANDOZ
  Company Number: NZ-002147023-NVSC2025NZ010502

PATIENT
  Age: 6 Year
  Sex: Male

DRUGS (1)
  1. METHYLPHENIDATE HYDROCHLORIDE [Suspect]
     Active Substance: METHYLPHENIDATE HYDROCHLORIDE
     Indication: Product used for unknown indication
     Route: 065

REACTIONS (4)
  - Alcohol poisoning [Unknown]
  - Somnolence [Unknown]
  - Dysarthria [Unknown]
  - Product substitution issue [Unknown]
